FAERS Safety Report 11898270 (Version 1)
Quarter: 2016Q1

REPORT INFORMATION
  Report Type: Spontaneous
  Country: US (occurrence: US)
  Receive Date: 20160108
  Receipt Date: 20160108
  Transmission Date: 20160526
  Serious: Yes (Hospitalization)
  Sender: FDA-Public Use
  Company Number: US-TARO PHARMACEUTICALS USA.,INC-2015SUN02324

PATIENT
  Age: 88 Year
  Sex: Male

DRUGS (6)
  1. HEPARIN [Suspect]
     Active Substance: HEPARIN SODIUM
     Dosage: UNK, STARTED 3 HOURS AFTER EPIDURAL CATHETER REMOVAL
     Route: 042
  2. ASPIRIN. [Concomitant]
     Active Substance: ASPIRIN
     Dosage: 81 MG, DAILY
  3. WARFARIN [Suspect]
     Active Substance: WARFARIN
     Indication: ANTICOAGULANT THERAPY
     Dosage: UNK
     Route: 065
  4. HEPARIN [Suspect]
     Active Substance: HEPARIN SODIUM
     Indication: ANTICOAGULANT THERAPY
     Dosage: , STOPPED AT 2 AM THE MORNING OF SURGERYUNK
     Route: 042
  5. WARFARIN [Suspect]
     Active Substance: WARFARIN
     Dosage: 7.5 MG, UNK
     Route: 065
  6. HEPARIN [Suspect]
     Active Substance: HEPARIN SODIUM
     Dosage: 6000 IU, DURING AAA REPAIR
     Route: 042

REACTIONS (6)
  - Muscular weakness [Unknown]
  - Spinal epidural haematoma [Unknown]
  - Back pain [Unknown]
  - Gait disturbance [Unknown]
  - Urinary retention [Unknown]
  - Pain in extremity [Unknown]

NARRATIVE: CASE EVENT DATE: 20120331
